FAERS Safety Report 5779174-6 (Version None)
Quarter: 2008Q2

REPORT INFORMATION
  Report Type: 
  Country: None (occurrence: None)
  Receive Date: 20080617
  Receipt Date: 20080605
  Transmission Date: 20081010
  Serious: Yes (Hospitalization)
  Sender: FDA-Public Use
  Company Number: 2008-01983

PATIENT
  Age: 65 Year
  Sex: Male
  Weight: 77 kg

DRUGS (7)
  1. VELCADE [Suspect]
     Indication: MANTLE CELL LYMPHOMA
     Dosage: 1.3 MG/M2, IV BOLUS
     Route: 040
     Dates: start: 20080327, end: 20080516
  2. RITUXIMAB(RITUXIMAB) INJECTION, 375MG/M2 [Suspect]
     Indication: MANTLE CELL LYMPHOMA
     Dosage: 375 MG/M2, INTRAVENOUS
     Route: 042
     Dates: start: 20080327, end: 20080513
  3. CYCLOPHOSPHAMIDE [Suspect]
     Indication: MANTLE CELL LYMPHOMA
     Dosage: 300 MG/M2, INTRAVENOUS
     Route: 042
     Dates: start: 20080327, end: 20080515
  4. DOXORUBICIN HCL [Suspect]
     Indication: MANTLE CELL LYMPHOMA
     Dosage: 25 MG/M2, INTRAVENOUS
     Route: 042
     Dates: start: 20080327, end: 20080514
  5. VINCRISTINE [Suspect]
     Indication: MANTLE CELL LYMPHOMA
     Dosage: 1 MG, IV BOLUS
     Route: 040
     Dates: start: 20080327, end: 20080515
  6. DEXAMETHASONE TAB [Suspect]
     Indication: MANTLE CELL LYMPHOMA
     Dosage: 40 MG
     Dates: start: 20080327, end: 20080516
  7. NEULASTA [Suspect]
     Indication: MANTLE CELL LYMPHOMA
     Dosage: 6 MG, SUBCUTANEOUS
     Route: 058
     Dates: start: 20080327, end: 20080519

REACTIONS (3)
  - FEBRILE NEUTROPENIA [None]
  - HYPOTENSION [None]
  - INFECTION [None]
